FAERS Safety Report 4490853-3 (Version None)
Quarter: 2004Q4

REPORT INFORMATION
  Report Type: 
  Country: None (occurrence: None)
  Receive Date: 20041102
  Receipt Date: 20040908
  Transmission Date: 20050328
  Serious: Yes (Other)
  Sender: FDA-Public Use
  Company Number: PHBS2004JP11996

PATIENT
  Age: 75 Year
  Sex: Male

DRUGS (5)
  1. DIOVAN [Suspect]
     Indication: HYPERTENSION
     Dosage: 40 MG/DAY
     Route: 048
     Dates: start: 20040808, end: 20040908
  2. GLYBURIDE [Concomitant]
     Dosage: 7.5 MG, UNK
     Route: 048
     Dates: start: 20010817
  3. MELBIN [Concomitant]
     Dosage: 500 MG, UNK
     Route: 048
     Dates: start: 20010512
  4. GLUCOBAY [Concomitant]
     Dosage: .9 MG, UNK
     Route: 048
     Dates: start: 20010817
  5. MEVALOTIN [Concomitant]
     Dosage: 20 MG, UNK
     Route: 048
     Dates: start: 20010817

REACTIONS (3)
  - BUNDLE BRANCH BLOCK [None]
  - HEART RATE IRREGULAR [None]
  - VENTRICULAR ARRHYTHMIA [None]
